FAERS Safety Report 6537609-5 (Version None)
Quarter: 2010Q1

REPORT INFORMATION
  Report Type: 
  Country: None (occurrence: None)
  Receive Date: 20100114
  Receipt Date: 20100112
  Transmission Date: 20100710
  Serious: Yes (Hospitalization)
  Sender: FDA-Public Use
  Company Number: A0838993A

PATIENT
  Age: 74 Year
  Sex: Female

DRUGS (4)
  1. ADVAIR DISKUS 100/50 [Suspect]
     Indication: ASTHMA
     Dosage: 2PUFF TWICE PER DAY
     Route: 055
     Dates: start: 20050101
  2. SPIRIVA [Concomitant]
  3. CHOLESTEROL REDUCING AGENT [Concomitant]
  4. BLOOD PRESSURE MEDICATION [Concomitant]

REACTIONS (6)
  - ASTHMA [None]
  - COUGH [None]
  - DRUG INEFFECTIVE [None]
  - DYSPHONIA [None]
  - INCREASED UPPER AIRWAY SECRETION [None]
  - OVERDOSE [None]
